FAERS Safety Report 11940644 (Version 2)
Quarter: 2016Q1

REPORT INFORMATION
  Report Type: Spontaneous
  Country: ES (occurrence: ES)
  Receive Date: 20160122
  Receipt Date: 20160122
  Transmission Date: 20160526
  Serious: Yes (Other)
  Sender: FDA-Public Use
  Company Number: ES-PFIZER INC-2015456983

PATIENT
  Age: 51 Year
  Sex: Female

DRUGS (1)
  1. CHAMPIX [Suspect]
     Active Substance: VARENICLINE TARTRATE
     Dosage: 1 MG, UNK

REACTIONS (14)
  - Dyspepsia [Unknown]
  - Oesophageal disorder [Unknown]
  - Discomfort [Unknown]
  - Dysphagia [Unknown]
  - Rash [Unknown]
  - Throat irritation [Unknown]
  - Dyspnoea [Unknown]
  - Aphasia [Unknown]
  - Pruritus [Unknown]
  - Inflammation [Unknown]
  - Hypersensitivity [Unknown]
  - Pharyngeal inflammation [Unknown]
  - Fungal infection [Unknown]
  - Dysphonia [Unknown]
